FAERS Safety Report 6333083-2 (Version None)
Quarter: 2009Q3

REPORT INFORMATION
  Report Type: 
  Country: None (occurrence: None)
  Receive Date: 20090828
  Receipt Date: 20090818
  Transmission Date: 20100115
  Serious: Yes (Hospitalization)
  Sender: FDA-Public Use
  Company Number: US-PFIZER INC-2008071479

PATIENT
  Sex: Male
  Weight: 86 kg

DRUGS (15)
  1. NAPROXEN [Suspect]
     Indication: OSTEOARTHRITIS
     Dosage: UNK
     Route: 048
     Dates: start: 20080314
  2. BLINDED *NO SUBJECT DRUG [Suspect]
     Indication: OSTEOARTHRITIS
     Dosage: UNK
     Route: 048
     Dates: start: 20080314
  3. BLINDED *PLACEBO [Suspect]
     Indication: OSTEOARTHRITIS
     Dosage: UNK
     Route: 048
     Dates: start: 20080314
  4. BLINDED CELECOXIB [Suspect]
     Indication: OSTEOARTHRITIS
     Dosage: UNK
     Route: 048
     Dates: start: 20080314
  5. BLINDED IBUPROFEN [Suspect]
     Indication: OSTEOARTHRITIS
     Dosage: UNK
     Route: 048
     Dates: start: 20080314
  6. NAPROXEN [Suspect]
     Dosage: UNK
     Route: 048
     Dates: start: 20080314
  7. NEXIUM [Concomitant]
     Dosage: QD
     Route: 048
     Dates: start: 20080313
  8. METOPROLOL [Concomitant]
     Dosage: BID
     Route: 048
     Dates: start: 20050101
  9. NORVASC [Concomitant]
     Dosage: QD
     Route: 048
     Dates: start: 20050101
  10. FLEXERIL [Concomitant]
     Dosage: PRN
     Route: 048
     Dates: start: 20060101
  11. ASPIRIN [Concomitant]
     Dosage: QD
     Route: 048
     Dates: start: 20030101
  12. VYTORIN [Concomitant]
     Dosage: 10/20;1 TAB,QD
     Route: 048
     Dates: start: 20070101
  13. TRAMADOL HCL [Concomitant]
     Dosage: 1 TAB,QID
     Route: 048
     Dates: start: 20050101
  14. EXTRA STRENGTH TYLENOL [Concomitant]
     Dosage: PRN
     Route: 048
     Dates: start: 19800101
  15. POLYCARBOPHIL CALCIUM [Concomitant]
     Dosage: 2 TABS,PRN
     Route: 048
     Dates: start: 19980101

REACTIONS (1)
  - TRANSIENT ISCHAEMIC ATTACK [None]
